FAERS Safety Report 12934203 (Version 1)
Quarter: 2016Q4

REPORT INFORMATION
  Report Type: Spontaneous
  Country: CA (occurrence: CA)
  Receive Date: 20161111
  Receipt Date: 20161111
  Transmission Date: 20170207
  Serious: Yes (Other)
  Sender: FDA-Public Use
  Company Number: CA-009507513-1611CAN005441

PATIENT
  Sex: Female

DRUGS (3)
  1. METFORMIN [Concomitant]
     Active Substance: METFORMIN HYDROCHLORIDE
  2. GLYBURIDE. [Concomitant]
     Active Substance: GLYBURIDE
  3. JANUVIA [Suspect]
     Active Substance: SITAGLIPTIN PHOSPHATE
     Dosage: 100 MG DAILY
     Route: 048

REACTIONS (3)
  - Cholelithiasis [Unknown]
  - Pancreatitis [Unknown]
  - Adverse event [Unknown]

NARRATIVE: CASE EVENT DATE: 2016
